FAERS Safety Report 22242960 (Version 2)
Quarter: 2023Q2

REPORT INFORMATION
  Report Type: Spontaneous
  Country: US (occurrence: US)
  Receive Date: 20230424
  Receipt Date: 20230504
  Transmission Date: 20230721
  Serious: Yes (Other)
  Sender: FDA-Public Use
  Company Number: US-BAXTER-2023BAX018797

PATIENT
  Sex: Male

DRUGS (5)
  1. DIANEAL [Suspect]
     Active Substance: CALCIUM CHLORIDE\DEXTROSE\MAGNESIUM CHLORIDE\SODIUM CHLORIDE\SODIUM LACTATE
     Indication: End stage renal disease
     Dosage: UNK
     Route: 033
     Dates: start: 20230130, end: 20230326
  2. DIANEAL [Suspect]
     Active Substance: CALCIUM CHLORIDE\DEXTROSE\MAGNESIUM CHLORIDE\SODIUM CHLORIDE\SODIUM LACTATE
     Dosage: UNK
     Route: 033
     Dates: start: 20230412
  3. EXTRANEAL [Suspect]
     Active Substance: CALCIUM CHLORIDE\ICODEXTRIN\MAGNESIUM CHLORIDE\SODIUM CHLORIDE\SODIUM LACTATE
     Indication: End stage renal disease
     Dosage: UNK
     Route: 033
     Dates: start: 20230327, end: 20230412
  4. VANCOMYCIN [Concomitant]
     Active Substance: VANCOMYCIN
     Route: 033
  5. CEFTAZIDIME [Concomitant]
     Active Substance: CEFTAZIDIME
     Route: 033

REACTIONS (5)
  - Peritoneal dialysis complication [Unknown]
  - Drug hypersensitivity [Unknown]
  - Skin burning sensation [Unknown]
  - Rash [Unknown]
  - Rash erythematous [Unknown]
